FAERS Safety Report 9760426 (Version 2)
Quarter: 2014Q1

REPORT INFORMATION
  Report Type: Spontaneous
  Country: US (occurrence: None)
  Receive Date: 20131212
  Receipt Date: 20140226
  Transmission Date: 20141002
  Serious: Yes (Hospitalization)
  Sender: FDA-Public Use
  Company Number: 13-05102

PATIENT
  Age: 85 Year
  Sex: Male

DRUGS (3)
  1. ALBUTEROL SULFATE INHALATION SOLUTION, 0.083% [Suspect]
  2. ALBUTEROL NEBULIZER [Concomitant]
  3. BROMIDE [Concomitant]

REACTIONS (6)
  - Lung infection [None]
  - Tachycardia [None]
  - Atrial fibrillation [None]
  - Bronchospasm [None]
  - Treatment noncompliance [None]
  - Anticoagulation drug level below therapeutic [None]
